FAERS Safety Report 10556721 (Version 3)
Quarter: 2014Q4

REPORT INFORMATION
  Report Type: Spontaneous
  Country: JP (occurrence: JP)
  Receive Date: 20141031
  Receipt Date: 20141217
  Transmission Date: 20150529
  Serious: Yes (Hospitalization)
  Sender: FDA-Public Use
  Company Number: JP-ROCHE-1483155

PATIENT
  Age: 64 Year
  Sex: Male

DRUGS (2)
  1. LUCENTIS [Suspect]
     Active Substance: RANIBIZUMAB
     Indication: AGE-RELATED MACULAR DEGENERATION
     Route: 050
     Dates: start: 20140815
  2. LUCENTIS [Suspect]
     Active Substance: RANIBIZUMAB
     Dosage: LAST DOSE ADMINISTERED.
     Route: 050
     Dates: start: 20140912, end: 20140912

REACTIONS (1)
  - Diverticulitis intestinal haemorrhagic [Recovering/Resolving]

NARRATIVE: CASE EVENT DATE: 20140912
